FAERS Safety Report 20755848 (Version 5)
Quarter: 2024Q1

REPORT INFORMATION
  Report Type: Other
  Country: CA (occurrence: CA)
  Receive Date: 20220427
  Receipt Date: 20240207
  Transmission Date: 20240410
  Serious: Yes (Other)
  Sender: FDA-Public Use
  Company Number: CA-GLENMARK PHARMACEUTICALS-2022GMK071965

PATIENT

DRUGS (90)
  1. GABAPENTIN [Suspect]
     Active Substance: GABAPENTIN
     Indication: Tremor
     Dosage: UNK
     Route: 065
  2. GABAPENTIN [Suspect]
     Active Substance: GABAPENTIN
     Indication: Resting tremor
     Dosage: UNK
     Route: 065
  3. GABAPENTIN [Suspect]
     Active Substance: GABAPENTIN
     Indication: Head titubation
     Dosage: UNK
     Route: 065
  4. GABAPENTIN [Suspect]
     Active Substance: GABAPENTIN
     Indication: Parkinsonian rest tremor
     Dosage: UNK
     Route: 065
  5. GABAPENTIN [Suspect]
     Active Substance: GABAPENTIN
     Indication: Parkinson^s disease
  6. AMANTADINE [Suspect]
     Active Substance: AMANTADINE
     Indication: Head titubation
     Dosage: 100 MILLIGRAM, 2 EVERY 1 DAYS
     Route: 065
  7. AMANTADINE [Suspect]
     Active Substance: AMANTADINE
     Indication: Parkinsonian rest tremor
     Dosage: 100 MILLIGRAM, 1 EVERY 1 DAY
     Route: 065
  8. AMANTADINE [Suspect]
     Active Substance: AMANTADINE
     Indication: Parkinson^s disease
     Dosage: 200 MILLIGRAM, 1 EVERY 1 DAY
     Route: 065
  9. AMANTADINE [Suspect]
     Active Substance: AMANTADINE
     Indication: Resting tremor
     Dosage: 100 MILLIGRAM, 2 EVERY 1 DAYS
     Route: 065
  10. CLONAZEPAM [Suspect]
     Active Substance: CLONAZEPAM
     Indication: Tremor
     Dosage: UNK
     Route: 065
  11. CLONAZEPAM [Suspect]
     Active Substance: CLONAZEPAM
     Indication: Parkinsonian rest tremor
     Dosage: UNK
     Route: 048
  12. CLONAZEPAM [Suspect]
     Active Substance: CLONAZEPAM
     Indication: Parkinson^s disease
     Dosage: UNK
     Route: 065
  13. CLONAZEPAM [Suspect]
     Active Substance: CLONAZEPAM
     Indication: Head titubation
  14. PRAMIPEXOLE [Suspect]
     Active Substance: PRAMIPEXOLE\PRAMIPEXOLE DIHYDROCHLORIDE
     Indication: Head titubation
     Dosage: 1 MILLIGRAM, 3 EVERY 1 DAYS
     Route: 065
  15. PRAMIPEXOLE [Suspect]
     Active Substance: PRAMIPEXOLE\PRAMIPEXOLE DIHYDROCHLORIDE
     Indication: Parkinson^s disease
     Dosage: UNK
     Route: 065
  16. PRAMIPEXOLE [Suspect]
     Active Substance: PRAMIPEXOLE\PRAMIPEXOLE DIHYDROCHLORIDE
     Indication: Parkinsonian rest tremor
     Dosage: UNK
     Route: 065
  17. PRAMIPEXOLE [Suspect]
     Active Substance: PRAMIPEXOLE\PRAMIPEXOLE DIHYDROCHLORIDE
     Indication: Resting tremor
     Dosage: UNK
     Route: 065
  18. PRIMIDONE [Suspect]
     Active Substance: PRIMIDONE
     Indication: Tremor
     Dosage: UNK
     Route: 065
  19. PRIMIDONE [Suspect]
     Active Substance: PRIMIDONE
     Indication: Head titubation
     Dosage: UNK
     Route: 065
  20. PRIMIDONE [Suspect]
     Active Substance: PRIMIDONE
     Indication: Parkinsonian rest tremor
     Dosage: UNK
     Route: 065
  21. PRIMIDONE [Suspect]
     Active Substance: PRIMIDONE
     Indication: Parkinson^s disease
     Dosage: UNK
     Route: 065
  22. PRIMIDONE [Suspect]
     Active Substance: PRIMIDONE
     Indication: Resting tremor
  23. PROPRANOLOL [Suspect]
     Active Substance: PROPRANOLOL HYDROCHLORIDE
     Indication: Tremor
     Dosage: UNK
     Route: 065
  24. PROPRANOLOL [Suspect]
     Active Substance: PROPRANOLOL HYDROCHLORIDE
     Indication: Head titubation
  25. PROPRANOLOL [Suspect]
     Active Substance: PROPRANOLOL HYDROCHLORIDE
     Indication: Parkinsonian rest tremor
  26. PROPRANOLOL [Suspect]
     Active Substance: PROPRANOLOL HYDROCHLORIDE
     Indication: Parkinson^s disease
  27. PROPRANOLOL [Suspect]
     Active Substance: PROPRANOLOL HYDROCHLORIDE
     Indication: Resting tremor
  28. ROPINIROLE [Suspect]
     Active Substance: ROPINIROLE
     Indication: Head titubation
     Dosage: UNK
     Route: 065
  29. ROPINIROLE [Suspect]
     Active Substance: ROPINIROLE
     Indication: Parkinson^s disease
  30. ROPINIROLE [Suspect]
     Active Substance: ROPINIROLE
     Indication: Parkinsonian rest tremor
  31. ROPINIROLE [Suspect]
     Active Substance: ROPINIROLE
     Indication: Resting tremor
  32. PROPRANOLOL HYDROCHLORIDE [Suspect]
     Active Substance: PROPRANOLOL HYDROCHLORIDE
     Indication: Head titubation
     Dosage: UNK
     Route: 065
  33. PROPRANOLOL HYDROCHLORIDE [Suspect]
     Active Substance: PROPRANOLOL HYDROCHLORIDE
     Indication: Resting tremor
  34. PROPRANOLOL HYDROCHLORIDE [Suspect]
     Active Substance: PROPRANOLOL HYDROCHLORIDE
     Indication: Parkinson^s disease
  35. PROPRANOLOL HYDROCHLORIDE [Suspect]
     Active Substance: PROPRANOLOL HYDROCHLORIDE
     Indication: Parkinsonian rest tremor
  36. BENSERAZIDE\LEVODOPA [Suspect]
     Active Substance: BENSERAZIDE\LEVODOPA
     Indication: Parkinson^s disease
     Dosage: UNK, TID (3 EVERY 1 DAYS)
     Route: 065
  37. BENSERAZIDE\LEVODOPA [Suspect]
     Active Substance: BENSERAZIDE\LEVODOPA
     Dosage: UNK, TID (3 EVERY 1 DAYS)
     Route: 065
  38. SELEGILINE [Suspect]
     Active Substance: SELEGILINE
     Indication: Tremor
     Dosage: UNK
     Route: 065
  39. SELEGILINE [Suspect]
     Active Substance: SELEGILINE
     Indication: Dysphonia
     Dosage: UNK
     Route: 065
  40. ROPINIROLE HYDROCHLORIDE [Suspect]
     Active Substance: ROPINIROLE HYDROCHLORIDE
     Indication: Resting tremor
     Dosage: UNK
     Route: 065
  41. TRIHEXYPHENIDYL [Suspect]
     Active Substance: TRIHEXYPHENIDYL
     Indication: Head titubation
     Dosage: 2 MILLIGRAM, 3 EVERY 1 DAYS
     Route: 065
  42. TRIHEXYPHENIDYL [Suspect]
     Active Substance: TRIHEXYPHENIDYL
     Indication: Resting tremor
  43. TRIHEXYPHENIDYL [Suspect]
     Active Substance: TRIHEXYPHENIDYL
     Indication: Parkinson^s disease
  44. TRIHEXYPHENIDYL [Suspect]
     Active Substance: TRIHEXYPHENIDYL
     Indication: Parkinsonian rest tremor
  45. PROFENAMINE HYDROCHLORIDE [Suspect]
     Active Substance: PROFENAMINE HYDROCHLORIDE
     Indication: Head titubation
     Dosage: UNK
     Route: 065
  46. PROFENAMINE HYDROCHLORIDE [Suspect]
     Active Substance: PROFENAMINE HYDROCHLORIDE
     Indication: Parkinson^s disease
  47. PROFENAMINE HYDROCHLORIDE [Suspect]
     Active Substance: PROFENAMINE HYDROCHLORIDE
     Indication: Parkinsonian rest tremor
  48. PROFENAMINE HYDROCHLORIDE [Suspect]
     Active Substance: PROFENAMINE HYDROCHLORIDE
     Indication: Resting tremor
  49. BENSERAZIDE HYDROCHLORIDE\LEVODOPA [Suspect]
     Active Substance: BENSERAZIDE HYDROCHLORIDE\LEVODOPA
     Indication: Parkinson^s disease
     Dosage: UNK
     Route: 065
  50. BENSERAZIDE HYDROCHLORIDE\LEVODOPA [Suspect]
     Active Substance: BENSERAZIDE HYDROCHLORIDE\LEVODOPA
     Indication: Resting tremor
     Dosage: UNK, 3 EVERY 1 DAYS
     Route: 065
  51. BENSERAZIDE HYDROCHLORIDE\LEVODOPA [Suspect]
     Active Substance: BENSERAZIDE HYDROCHLORIDE\LEVODOPA
     Dosage: UNK, 3 EVERY 1 DAYS
     Route: 065
  52. CARBIDOPA\LEVODOPA [Suspect]
     Active Substance: CARBIDOPA\LEVODOPA
     Indication: Tremor
     Dosage: UNK
     Route: 065
  53. CARBIDOPA\LEVODOPA [Suspect]
     Active Substance: CARBIDOPA\LEVODOPA
     Indication: Dysphonia
     Dosage: UNK
     Route: 065
  54. PROFENAMINE HYDROCHLORIDE [Suspect]
     Active Substance: PROFENAMINE HYDROCHLORIDE
     Indication: Resting tremor
     Dosage: UNK
     Route: 065
  55. PROFENAMINE HYDROCHLORIDE [Suspect]
     Active Substance: PROFENAMINE HYDROCHLORIDE
     Indication: Parkinsonian rest tremor
  56. PROFENAMINE HYDROCHLORIDE [Suspect]
     Active Substance: PROFENAMINE HYDROCHLORIDE
     Indication: Parkinson^s disease
  57. PROFENAMINE HYDROCHLORIDE [Suspect]
     Active Substance: PROFENAMINE HYDROCHLORIDE
     Indication: Head titubation
  58. BENSERAZIDE\LEVODOPA [Suspect]
     Active Substance: BENSERAZIDE\LEVODOPA
     Indication: Resting tremor
     Dosage: UNK, 3 EVERY 1 DAY
     Route: 065
  59. BENSERAZIDE\LEVODOPA [Suspect]
     Active Substance: BENSERAZIDE\LEVODOPA
     Indication: Parkinson^s disease
  60. PROFENAMINE [Suspect]
     Active Substance: PROFENAMINE
     Indication: Resting tremor
     Dosage: UNK
     Route: 065
  61. PROFENAMINE [Suspect]
     Active Substance: PROFENAMINE
     Indication: Parkinsonian rest tremor
  62. PROFENAMINE [Suspect]
     Active Substance: PROFENAMINE
     Indication: Parkinson^s disease
  63. PROFENAMINE [Suspect]
     Active Substance: PROFENAMINE
     Indication: Head titubation
  64. CARBIDOPA [Suspect]
     Active Substance: CARBIDOPA
     Indication: Tremor
     Dosage: UNK
     Route: 065
  65. CARBIDOPA [Suspect]
     Active Substance: CARBIDOPA
     Indication: Dysphonia
  66. ROPINIROLE HYDROCHLORIDE [Suspect]
     Active Substance: ROPINIROLE HYDROCHLORIDE
     Indication: Resting tremor
     Route: 065
  67. ROPINIROLE HYDROCHLORIDE [Suspect]
     Active Substance: ROPINIROLE HYDROCHLORIDE
     Indication: Parkinsonian rest tremor
     Route: 065
  68. ROPINIROLE HYDROCHLORIDE [Suspect]
     Active Substance: ROPINIROLE HYDROCHLORIDE
     Indication: Parkinson^s disease
     Route: 065
  69. ROPINIROLE HYDROCHLORIDE [Suspect]
     Active Substance: ROPINIROLE HYDROCHLORIDE
     Indication: Head titubation
     Route: 065
  70. PROPRANOLOL HYDROCHLORIDE [Suspect]
     Active Substance: PROPRANOLOL HYDROCHLORIDE
     Indication: Head titubation
     Dosage: UNK
     Route: 065
  71. PROPRANOLOL HYDROCHLORIDE [Suspect]
     Active Substance: PROPRANOLOL HYDROCHLORIDE
     Indication: Resting tremor
     Dosage: UNK
     Route: 065
  72. PROPRANOLOL HYDROCHLORIDE [Suspect]
     Active Substance: PROPRANOLOL HYDROCHLORIDE
     Indication: Parkinson^s disease
     Dosage: UNK
     Route: 065
  73. PROPRANOLOL HYDROCHLORIDE [Suspect]
     Active Substance: PROPRANOLOL HYDROCHLORIDE
     Indication: Parkinsonian rest tremor
  74. CARBIDOPA\LEVODOPA [Suspect]
     Active Substance: CARBIDOPA\LEVODOPA
     Indication: Tremor
     Dosage: UNK
     Route: 065
  75. CARBIDOPA\LEVODOPA [Suspect]
     Active Substance: CARBIDOPA\LEVODOPA
     Indication: Dysphonia
  76. AMANTADINE [Concomitant]
     Active Substance: AMANTADINE
     Indication: Resting tremor
     Dosage: 100 MILLIGRAM, 1 EVERY 24 HOURS
     Route: 065
  77. AMANTADINE [Concomitant]
     Active Substance: AMANTADINE
     Indication: Parkinson^s disease
     Dosage: 200 MILLIGRAM, 1 EVERY 24 HOURS
     Route: 065
  78. AMANTADINE [Concomitant]
     Active Substance: AMANTADINE
     Dosage: 100 MILLIGRAM, 1 EVERY 24 HOURS
     Route: 065
  79. BENSERAZIDE HYDROCHLORIDE\LEVODOPA [Concomitant]
     Active Substance: BENSERAZIDE HYDROCHLORIDE\LEVODOPA
     Indication: Resting tremor
     Dosage: 3 EVERY 1 DAYS
     Route: 065
  80. BENSERAZIDE HYDROCHLORIDE\LEVODOPA [Concomitant]
     Active Substance: BENSERAZIDE HYDROCHLORIDE\LEVODOPA
     Dosage: 3 EVERY 1 DAYS
     Route: 065
  81. CLONAZEPAM [Concomitant]
     Active Substance: CLONAZEPAM
     Indication: Resting tremor
     Dosage: UNK
     Route: 065
  82. CLONAZEPAM [Concomitant]
     Active Substance: CLONAZEPAM
     Indication: Head titubation
  83. PROFENAMINE [Concomitant]
     Active Substance: PROFENAMINE
     Indication: Resting tremor
     Dosage: UNK
     Route: 065
  84. PROFENAMINE [Concomitant]
     Active Substance: PROFENAMINE
     Indication: Parkinson^s disease
  85. PROFENAMINE [Concomitant]
     Active Substance: PROFENAMINE
     Indication: Head titubation
  86. PROFENAMINE [Concomitant]
     Active Substance: PROFENAMINE
     Indication: Parkinsonian rest tremor
  87. TRIHEXYPHENIDYL [Concomitant]
     Active Substance: TRIHEXYPHENIDYL
     Indication: Resting tremor
     Dosage: 2 MILLIGRAM, 3 EVERY 1 DAYS
     Route: 065
  88. TRIHEXYPHENIDYL [Concomitant]
     Active Substance: TRIHEXYPHENIDYL
     Indication: Parkinsonian rest tremor
  89. TRIHEXYPHENIDYL [Concomitant]
     Active Substance: TRIHEXYPHENIDYL
     Indication: Parkinson^s disease
  90. TRIHEXYPHENIDYL [Concomitant]
     Active Substance: TRIHEXYPHENIDYL
     Indication: Head titubation

REACTIONS (9)
  - Off label use [Unknown]
  - Parkinsonian rest tremor [Unknown]
  - Hallucination [Unknown]
  - Drug ineffective [Unknown]
  - Oedema peripheral [Unknown]
  - Somnolence [Unknown]
  - Therapeutic response decreased [Unknown]
  - Dizziness [Unknown]
  - Product use in unapproved indication [Unknown]
